FAERS Safety Report 17862916 (Version 1)
Quarter: 2020Q2

REPORT INFORMATION
  Report Type: Spontaneous
  Country: CN (occurrence: CN)
  Receive Date: 20200605
  Receipt Date: 20200605
  Transmission Date: 20200714
  Serious: Yes (Other)
  Sender: FDA-Public Use
  Company Number: CN-ASTRAZENECA-2020SE70897

PATIENT
  Age: 63 Year
  Sex: Male
  Weight: 49.5 kg

DRUGS (8)
  1. ILAPRAZOLE [Suspect]
     Active Substance: ILAPRAZOLE
     Indication: HYPERTENSION
     Route: 048
     Dates: start: 20200520, end: 20200521
  2. NEXIUM [Suspect]
     Active Substance: ESOMEPRAZOLE MAGNESIUM
     Indication: GASTROOESOPHAGEAL REFLUX DISEASE
     Route: 048
     Dates: start: 20200521, end: 20200525
  3. ILAPRAZOLE [Suspect]
     Active Substance: ILAPRAZOLE
     Indication: LARGE INTESTINE POLYP
     Route: 048
     Dates: start: 20200520, end: 20200521
  4. ILAPRAZOLE [Suspect]
     Active Substance: ILAPRAZOLE
     Indication: GASTROOESOPHAGEAL REFLUX DISEASE
     Route: 048
     Dates: start: 20200520, end: 20200521
  5. NEXIUM [Suspect]
     Active Substance: ESOMEPRAZOLE MAGNESIUM
     Indication: CHRONIC GASTRITIS
     Route: 048
     Dates: start: 20200521, end: 20200525
  6. NEXIUM [Suspect]
     Active Substance: ESOMEPRAZOLE MAGNESIUM
     Indication: HYPERTENSION
     Route: 048
     Dates: start: 20200521, end: 20200525
  7. ILAPRAZOLE [Suspect]
     Active Substance: ILAPRAZOLE
     Indication: CHRONIC GASTRITIS
     Route: 048
     Dates: start: 20200520, end: 20200521
  8. NEXIUM [Suspect]
     Active Substance: ESOMEPRAZOLE MAGNESIUM
     Indication: LARGE INTESTINE POLYP
     Route: 048
     Dates: start: 20200521, end: 20200525

REACTIONS (1)
  - Drug eruption [Recovering/Resolving]
